FAERS Safety Report 14147798 (Version 1)
Quarter: 2017Q4

REPORT INFORMATION
  Report Type: Spontaneous
  Country: US (occurrence: US)
  Receive Date: 20171031
  Receipt Date: 20171031
  Transmission Date: 20180321
  Serious: No
  Sender: FDA-Public Use
  Company Number: US-ROMARKLABS-2017-US-000105

PATIENT
  Age: 50 Year
  Sex: Male

DRUGS (2)
  1. ALINIA [Suspect]
     Active Substance: NITAZOXANIDE
     Indication: BABESIOSIS
     Dosage: 1 TABLET TWICE DAILY
     Route: 048
     Dates: start: 20170601, end: 20170614
  2. BABY ASPIRIN [Concomitant]
     Active Substance: ASPIRIN
     Indication: PRODUCT USED FOR UNKNOWN INDICATION
     Dosage: DAILY
     Route: 048

REACTIONS (1)
  - Epistaxis [Recovered/Resolved]

NARRATIVE: CASE EVENT DATE: 20170613
